FAERS Safety Report 9325656 (Version 1)
Quarter: 2013Q2

REPORT INFORMATION
  Report Type: Spontaneous
  Country: US (occurrence: None)
  Receive Date: 20130531
  Receipt Date: 20130531
  Transmission Date: 20140414
  Serious: No
  Sender: FDA-Public Use
  Company Number: None

PATIENT
  Age: 65 Year
  Sex: Male
  Weight: 90.72 kg

DRUGS (2)
  1. ESCITALOPRAM [Suspect]
     Indication: DEPRESSION
     Route: 048
     Dates: start: 20130220, end: 20130523
  2. ESCITALOPRAM [Suspect]
     Indication: GENERALISED ANXIETY DISORDER
     Route: 048
     Dates: start: 20130220, end: 20130523

REACTIONS (7)
  - Tachyphrenia [None]
  - Disturbance in attention [None]
  - Irritability [None]
  - Aggression [None]
  - Product substitution issue [None]
  - Depression [None]
  - Quality of life decreased [None]
